FAERS Safety Report 22187124 (Version 1)
Quarter: 2023Q2

REPORT INFORMATION
  Report Type: Spontaneous
  Country: US (occurrence: US)
  Receive Date: 20230407
  Receipt Date: 20230407
  Transmission Date: 20230722
  Serious: Yes (Other)
  Sender: FDA-Public Use
  Company Number: US-MLMSERVICE-20230320-4172619-1

PATIENT

DRUGS (4)
  1. PREDNISOLONE [Suspect]
     Active Substance: PREDNISOLONE
     Dosage: UNK UNK, QID (6 HRS)
  2. DEXYCU [Suspect]
     Active Substance: DEXAMETHASONE
     Indication: Steroid therapy
     Dosage: UNK
  3. LATANOPROST [Concomitant]
     Active Substance: LATANOPROST
     Indication: Open angle glaucoma
     Dosage: UNK
  4. KETOROLAC [Concomitant]
     Active Substance: KETOROLAC TROMETHAMINE
     Dosage: UNK

REACTIONS (3)
  - Iris atrophy [Not Recovered/Not Resolved]
  - Iris hypopigmentation [Not Recovered/Not Resolved]
  - Corectopia [Not Recovered/Not Resolved]
